FAERS Safety Report 8560547-3 (Version None)
Quarter: 2012Q3

REPORT INFORMATION
  Report Type: 
  Country: None (occurrence: None)
  Receive Date: 20120723
  Receipt Date: 20120712
  Transmission Date: 20120928
  Serious: Yes (Hospitalization)
  Sender: FDA-Public Use
  Company Number: AUR-APL-2010-02486

PATIENT
  Age: 61 Year
  Sex: Female

DRUGS (4)
  1. HYDROCHLOROTHIAZDE TAB [Concomitant]
  2. ENALAPRIL MALEATE [Concomitant]
  3. GLIMEPIRIDE [Concomitant]
  4. METFFORMIN HYDROCHLORIDE [Suspect]
     Indication: TYPE 2 DIABETES MELLITUS
     Dosage: 1700 MG (1700 MG, 1 IN 1 D), UNK

REACTIONS (15)
  - OLIGURIA [None]
  - HAEMODIALYSIS [None]
  - DISORIENTATION [None]
  - PAIN [None]
  - HYPERKALAEMIA [None]
  - RENAL FAILURE ACUTE [None]
  - NAUSEA [None]
  - DECREASED APPETITE [None]
  - ABDOMINAL DISCOMFORT [None]
  - GENERAL PHYSICAL HEALTH DETERIORATION [None]
  - VOMITING [None]
  - SOMNOLENCE [None]
  - METABOLIC ACIDOSIS [None]
  - LACTIC ACIDOSIS [None]
  - KUSSMAUL RESPIRATION [None]
